FAERS Safety Report 4636383-7 (Version None)
Quarter: 2005Q2

REPORT INFORMATION
  Report Type: 
  Country: None (occurrence: None)
  Receive Date: 20050415
  Receipt Date: 20050405
  Transmission Date: 20051028
  Serious: Yes (Hospitalization)
  Sender: FDA-Public Use
  Company Number: GB-JNJFOC-20050401359

PATIENT
  Sex: Female
  Weight: 82 kg

DRUGS (6)
  1. RISPERDAL [Suspect]
     Route: 049
     Dates: start: 20040901, end: 20050320
  2. ASPIRIN [Concomitant]
     Indication: CEREBROVASCULAR ACCIDENT
     Route: 049
  3. PERINDOPRIL [Concomitant]
     Indication: CEREBROVASCULAR ACCIDENT
     Route: 049
  4. PERINDOPRIL [Concomitant]
     Indication: HYPERTENSION
     Route: 049
  5. SERTRALINE [Concomitant]
     Indication: DEPRESSION
     Route: 049
  6. ATENOLOL [Concomitant]
     Indication: HYPERTENSION
     Route: 049

REACTIONS (2)
  - COGWHEEL RIGIDITY [None]
  - PAIN IN EXTREMITY [None]
